FAERS Safety Report 10146210 (Version 1)
Quarter: 2014Q2

REPORT INFORMATION
  Report Type: Spontaneous
  Country: US (occurrence: None)
  Receive Date: 20140430
  Receipt Date: 20140430
  Transmission Date: 20141212
  Serious: Yes (Hospitalization)
  Sender: FDA-Public Use
  Company Number: None

PATIENT
  Age: 77 Year
  Sex: Male

DRUGS (8)
  1. GENTAMICIN [Suspect]
     Indication: INFECTION
     Route: 042
     Dates: end: 20130718
  2. DAPTOMYCIN [Concomitant]
  3. SPIRONOLACTONE [Concomitant]
  4. ASPIRIN [Concomitant]
  5. ENOXAPARIN [Concomitant]
  6. LEVOTHYROXINE [Concomitant]
  7. SOTALOL [Concomitant]
  8. MULTIVITAMIN [Concomitant]

REACTIONS (1)
  - Renal failure acute [None]
